FAERS Safety Report 23261201 (Version 1)
Quarter: 2023Q4

REPORT INFORMATION
  Report Type: Spontaneous
  Country: US (occurrence: US)
  Receive Date: 20231205
  Receipt Date: 20231205
  Transmission Date: 20240109
  Serious: No
  Sender: FDA-Public Use
  Company Number: US-CELLTRION INC.-2023US008952

PATIENT

DRUGS (17)
  1. RITUXIMAB [Suspect]
     Active Substance: RITUXIMAB
     Indication: Immunoglobulin G4 related disease
     Dosage: 1 GRAM, 2 WEEKS APART
     Route: 042
  2. RITUXIMAB [Suspect]
     Active Substance: RITUXIMAB
     Dosage: 1 GRAM, 2 WEEKS APART
     Route: 042
  3. AMLODIPINE [Concomitant]
     Active Substance: AMLODIPINE BESYLATE
     Dosage: 10 MG DAILY
  4. ATORVASTATIN [Concomitant]
     Active Substance: ATORVASTATIN
     Dosage: 10 MG DAILY
  5. CARVEDILOL [Concomitant]
     Active Substance: CARVEDILOL
     Dosage: 12.5 MG TWICE DAILY
  6. COENZYME Q10 [Concomitant]
     Active Substance: DIETARY SUPPLEMENT\UBIDECARENONE
     Dosage: 400 MG DAILY
  7. CYANOCOBALAMIN [Concomitant]
     Active Substance: CYANOCOBALAMIN
     Dosage: 100 MCG DAILY
  8. FEXOFENADINE [Concomitant]
     Active Substance: FEXOFENADINE HYDROCHLORIDE
     Dosage: 60 MG DAILY
  9. GABAPENTIN [Concomitant]
     Active Substance: GABAPENTIN
     Dosage: 500 MG DAILY
  10. LEVOTHYROXINE [Concomitant]
     Active Substance: LEVOTHYROXINE
     Dosage: 88 MCG DAILY
  11. MIRTAZAPINE [Concomitant]
     Active Substance: MIRTAZAPINE
     Dosage: 15MG DAILY
  12. OMEPRAZOLE [Concomitant]
     Active Substance: OMEPRAZOLE
     Dosage: 20 MG DAILY
  13. TORSEMIDE [Concomitant]
     Active Substance: TORSEMIDE
     Dosage: 40 MG DAILY
  14. SODIUM BICARBONATE [Concomitant]
     Active Substance: SODIUM BICARBONATE
     Dosage: (1300 MG) THREE TIMES DAILY
  15. PREDNISONE [Concomitant]
     Active Substance: PREDNISONE
     Dosage: (50MG) DAILY/PREDNISONE TAPER
  16. CALCIUM ACETATE [Concomitant]
     Active Substance: CALCIUM ACETATE
     Dosage: CALCIUM ACETATE (667 MG) THREE TIMES DAILY
  17. POTASSIUM CHLORIDE [Concomitant]
     Active Substance: POTASSIUM CHLORIDE
     Dosage: (20 MEQ) DAILY

REACTIONS (1)
  - Drug ineffective for unapproved indication [Unknown]
